FAERS Safety Report 7965839-4 (Version None)
Quarter: 2011Q4

REPORT INFORMATION
  Report Type: 
  Country: None (occurrence: None)
  Receive Date: 20111208
  Receipt Date: 20111205
  Transmission Date: 20120403
  Serious: Yes (Hospitalization)
  Sender: FDA-Public Use
  Company Number: FR-EISAI INC-E2090-01884-SPO-FR

PATIENT
  Sex: Male

DRUGS (3)
  1. ZONEGRAN [Suspect]
     Route: 048
     Dates: start: 20081001, end: 20091002
  2. IBUPROFEN (ADVIL) [Suspect]
     Route: 048
     Dates: start: 20090930, end: 20090930
  3. VIMPAT [Concomitant]
     Route: 048
     Dates: start: 20090601, end: 20091002

REACTIONS (2)
  - RENAL TUBULAR NECROSIS [None]
  - RENAL FAILURE ACUTE [None]
